FAERS Safety Report 4522700-5 (Version None)
Quarter: 2004Q4

REPORT INFORMATION
  Report Type: 
  Country: None (occurrence: None)
  Receive Date: 20041207
  Receipt Date: 20041119
  Transmission Date: 20050328
  Serious: Yes (Hospitalization)
  Sender: FDA-Public Use
  Company Number: GBT041101796

PATIENT
  Age: 48 Year
  Sex: Male
  Weight: 89 kg

DRUGS (12)
  1. ALIMTA [Suspect]
     Indication: MESOTHELIOMA
     Dosage: 1000 MG/1 OTHER
     Dates: start: 20041021
  2. CISPLATIN [Suspect]
     Indication: MESOTHELIOMA
     Dosage: 150 MG/1 OTHER
     Dates: start: 20041021
  3. PAROXETINE HCL [Concomitant]
  4. ORAMORPH SR [Concomitant]
  5. MORPHINE SULFATE [Concomitant]
  6. CO-DANTHRAMER [Concomitant]
  7. MOVICOL [Concomitant]
  8. DIAZEPAM [Concomitant]
  9. METOCLOPRAMIDE [Concomitant]
  10. FOLIC ACID [Concomitant]
  11. VITAMIN B-12 [Concomitant]
  12. DEXAMETHASONE [Concomitant]

REACTIONS (3)
  - INCOHERENT [None]
  - MENTAL IMPAIRMENT [None]
  - PARANOIA [None]
